FAERS Safety Report 24823646 (Version 1)
Quarter: 2025Q1

REPORT INFORMATION
  Report Type: Spontaneous
  Country: IN (occurrence: IN)
  Receive Date: 20250109
  Receipt Date: 20250109
  Transmission Date: 20250409
  Serious: Yes (Other)
  Sender: ROCHE
  Company Number: IN-ROCHE-10000172261

PATIENT
  Age: 50 Year
  Sex: Female

DRUGS (1)
  1. TECENTRIQ [Suspect]
     Active Substance: ATEZOLIZUMAB
     Indication: Cervix cancer metastatic
     Route: 042
     Dates: start: 20240402

REACTIONS (7)
  - Pain [Unknown]
  - Bone lesion [Unknown]
  - Neoplasm malignant [Unknown]
  - Pulmonary mass [Unknown]
  - Lymphadenopathy [Unknown]
  - Osteolysis [Unknown]
  - Pulmonary hilum mass [Unknown]
